FAERS Safety Report 5201860-7 (Version None)
Quarter: 2007Q1

REPORT INFORMATION
  Report Type: 
  Country: None (occurrence: None)
  Receive Date: 20070103
  Receipt Date: 20061220
  Transmission Date: 20070707
  Serious: Yes (Hospitalization)
  Sender: FDA-Public Use
  Company Number: 2006-152230-NL

PATIENT
  Age: 28 Year
  Sex: Female

DRUGS (2)
  1. CHORIONIC GONADOTROPIN [Suspect]
     Dosage: DF
  2. QUINAGOLIDE HYDROCHLORIDE [Concomitant]

REACTIONS (3)
  - HAEMOGLOBIN DECREASED [None]
  - PERITONEAL HAEMORRHAGE [None]
  - SURGICAL PROCEDURE REPEATED [None]
